FAERS Safety Report 16723559 (Version 2)
Quarter: 2019Q3

REPORT INFORMATION
  Report Type: Report from Study
  Country: None (occurrence: US)
  Receive Date: 20190821
  Receipt Date: 20190824
  Transmission Date: 20191005
  Serious: Yes (Death)
  Sender: FDA-Public Use
  Company Number: US-ABBVIE-19K-163-2893804-00

PATIENT
  Age: 68 Year
  Sex: Male

DRUGS (1)
  1. VENCLEXTA [Suspect]
     Active Substance: VENETOCLAX
     Indication: ACUTE MYELOID LEUKAEMIA
     Route: 048
     Dates: start: 20190419, end: 201905

REACTIONS (2)
  - Off label use [Unknown]
  - Acute myeloid leukaemia [Fatal]

NARRATIVE: CASE EVENT DATE: 2019
